FAERS Safety Report 21326507 (Version 2)
Quarter: 2022Q4

REPORT INFORMATION
  Report Type: Spontaneous
  Country: US (occurrence: US)
  Receive Date: 20220913
  Receipt Date: 20221003
  Transmission Date: 20230113
  Serious: No
  Sender: FDA-Public Use
  Company Number: US-BRISTOL-MYERS SQUIBB COMPANY-2022-104918

PATIENT
  Age: 54 Year
  Sex: Female

DRUGS (2)
  1. REVLIMID [Suspect]
     Active Substance: LENALIDOMIDE
     Indication: Plasma cell myeloma
     Dosage: TAKE 1 CAPSULE (25MG) BY MOUTH ONCE DAILY FOR 14 DAYS ON AND 7 DAYS OFF
     Route: 048
     Dates: start: 20220823
  2. DEXAMETHASONE [Suspect]
     Active Substance: DEXAMETHASONE
     Indication: Product used for unknown indication
     Route: 065

REACTIONS (3)
  - Depression [Recovering/Resolving]
  - Abnormal dreams [Unknown]
  - Weight increased [Unknown]
